FAERS Safety Report 8551546-6 (Version None)
Quarter: 2012Q3

REPORT INFORMATION
  Report Type: 
  Country: None (occurrence: None)
  Receive Date: 20120730
  Receipt Date: 20120720
  Transmission Date: 20120928
  Serious: Yes (Hospitalization)
  Sender: FDA-Public Use
  Company Number: JP-VERTEX PHARMACEUTICALS INC.-AE-2012-010877

PATIENT
  Age: 67 Year
  Sex: Male

DRUGS (9)
  1. OMEPRAZOLE [Concomitant]
     Route: 048
     Dates: start: 20120417, end: 20120605
  2. CELESTAMINE TAB [Concomitant]
     Route: 048
     Dates: start: 20120522
  3. RIBAVIRIN [Concomitant]
     Route: 048
     Dates: start: 20120405, end: 20120605
  4. GASMOTIN [Concomitant]
     Route: 048
     Dates: start: 20120417, end: 20120605
  5. PROMACTA [Concomitant]
     Route: 048
     Dates: start: 20120417, end: 20120605
  6. BISULASE STRONG [Concomitant]
     Route: 048
     Dates: start: 20120417, end: 20120605
  7. ALLOPURINOL [Concomitant]
     Route: 048
     Dates: start: 20120508, end: 20120605
  8. TELAVIC (TELAPREVIR) [Suspect]
     Indication: HEPATITIS C
     Route: 048
     Dates: start: 20120405, end: 20120529
  9. PEGINTERFERON ALFA-2B [Concomitant]
     Route: 058
     Dates: start: 20120405, end: 20120605

REACTIONS (4)
  - PYREXIA [None]
  - SKIN EXFOLIATION [None]
  - DRUG ERUPTION [None]
  - ERYTHEMA ANNULARE [None]
